FAERS Safety Report 9843929 (Version 1)
Quarter: 2013Q4

REPORT INFORMATION
  Report Type: Spontaneous
  Country: US (occurrence: None)
  Receive Date: 20131223
  Receipt Date: 20131223
  Transmission Date: 20140711
  Serious: No
  Sender: FDA-Public Use
  Company Number: 1000049634

PATIENT
  Age: 69 Year
  Sex: Female

DRUGS (4)
  1. LINZESS (LINACLOTIDE) (145 MICROGRAM, CAPSULES) [Suspect]
     Indication: IRRITABLE BOWEL SYNDROME
     Dosage: 145 MCG (145 MCG, 1 IN 1 D), ORAL
     Route: 048
     Dates: start: 20130925, end: 20131001
  2. AMLODIPINE) (AMLODIPINE) (AMLODIPINE) [Concomitant]
  3. GLUCOSAMINE (GLUCOSAMINE) (GLUCOSAMINE) [Concomitant]
  4. LUTEIN (LUTEIN) (LUTEIN) [Concomitant]

REACTIONS (1)
  - Diarrhoea [None]
